FAERS Safety Report 6504961-6 (Version None)
Quarter: 2009Q4

REPORT INFORMATION
  Report Type: 
  Country: None (occurrence: None)
  Receive Date: 20091218
  Receipt Date: 20091214
  Transmission Date: 20100525
  Serious: Yes (Other)
  Sender: FDA-Public Use
  Company Number: IE-ROCHE-675023

PATIENT
  Age: 62 Year
  Sex: Female

DRUGS (9)
  1. MYCOPHENOLATE MOFETIL [Suspect]
     Route: 065
  2. SULFAMETHOXAZOLE AND TRIMETHOPRIM [Suspect]
     Route: 065
  3. TACROLIMUS [Suspect]
     Route: 065
  4. PREDNISOLONE [Suspect]
     Route: 065
  5. AMOXICILLIN AND CLAVULANATE POTASSIUM [Suspect]
     Route: 065
  6. VANCOMYCIN [Suspect]
     Route: 065
  7. FRUSEMIDE [Suspect]
     Route: 065
  8. RANITIDINE [Suspect]
     Route: 065
  9. GENTAMICIN [Suspect]
     Route: 065

REACTIONS (2)
  - GRAFT DYSFUNCTION [None]
  - TUBULOINTERSTITIAL NEPHRITIS [None]
